FAERS Safety Report 7082848-0 (Version None)
Quarter: 2010Q4

REPORT INFORMATION
  Report Type: 
  Country: None (occurrence: None)
  Receive Date: 20101104
  Receipt Date: 20101102
  Transmission Date: 20110411
  Serious: Yes (Hospitalization)
  Sender: FDA-Public Use
  Company Number: FR-WYE-G06899110

PATIENT
  Sex: Male

DRUGS (4)
  1. PIPERACILLIN AND TAZOBACTAM [Suspect]
     Indication: FEBRILE BONE MARROW APLASIA
     Dosage: UNKNOWN
     Route: 042
     Dates: start: 20101022, end: 20101024
  2. VALACYCLOVIR HYDROCHLORIDE [Concomitant]
     Dosage: UNKNOWN
     Dates: start: 20101011
  3. GENTAMICIN [Concomitant]
     Dosage: UNKNOWN
     Dates: start: 20101022
  4. BACTRIM [Suspect]
     Indication: ANTIFUNGAL PROPHYLAXIS
     Dosage: UNKNOWN
     Route: 048
     Dates: start: 20101011, end: 20101024

REACTIONS (1)
  - DERMATITIS EXFOLIATIVE [None]
